FAERS Safety Report 4595709-3 (Version None)
Quarter: 2005Q1

REPORT INFORMATION
  Report Type: 
  Country: None (occurrence: None)
  Receive Date: 20050224
  Receipt Date: 20050224
  Transmission Date: 20050727
  Serious: Yes (Other)
  Sender: FDA-Public Use
  Company Number: None

PATIENT
  Age: 50 Year
  Sex: Female
  Weight: 73.0291 kg

DRUGS (1)
  1. MS CONTIN [Suspect]
     Indication: BACK PAIN
     Dosage: 100 MG 1-2 BID
     Dates: start: 20040913

REACTIONS (4)
  - BACK PAIN [None]
  - INADEQUATE ANALGESIA [None]
  - NEUROPATHIC PAIN [None]
  - PHARMACEUTICAL PRODUCT COMPLAINT [None]
